FAERS Safety Report 4808903-0 (Version None)
Quarter: 2005Q4

REPORT INFORMATION
  Report Type: 
  Country: None (occurrence: None)
  Receive Date: 20051021
  Receipt Date: 20041027
  Transmission Date: 20060501
  Serious: No
  Sender: FDA-Public Use
  Company Number: FR_041005119

PATIENT
  Age: 71 Year
  Sex: Female

DRUGS (3)
  1. ZYPREXA [Suspect]
     Indication: DELUSIONAL DISORDER, PERSECUTORY TYPE
     Dosage: 20 MG/1 DAY
     Route: 048
     Dates: start: 20041001
  2. PARKINANE (TRIHEXYPHENIDYL HYDROCHLORIDE) [Concomitant]
  3. UNSPECIFIED NEUROLEPTICS [Concomitant]

REACTIONS (3)
  - LEUKOPENIA [None]
  - LYMPHOPENIA [None]
  - NEUTROPENIA [None]
